FAERS Safety Report 9537355 (Version 1)
Quarter: 2013Q3

REPORT INFORMATION
  Report Type: Spontaneous
  Country: FR (occurrence: FR)
  Receive Date: 20130919
  Receipt Date: 20130919
  Transmission Date: 20140515
  Serious: Yes (Other)
  Sender: FDA-Public Use
  Company Number: FR-PFIZER INC-2013267929

PATIENT
  Age: 60 Year
  Sex: Female

DRUGS (3)
  1. LYRICA [Suspect]
     Indication: HERPES ZOSTER
     Dosage: 25 MG, 1X/DAY IN THE EVENING
  2. LYRICA [Suspect]
     Dosage: 25 MG, 2X/DAY IN MORNING AND EVENING
     Dates: start: 20130704
  3. NEO MERCAZOLE [Concomitant]
     Indication: BASEDOW^S DISEASE
     Dosage: 2.5 MG
     Dates: start: 201211

REACTIONS (4)
  - Blood thyroid stimulating hormone decreased [Unknown]
  - Arrhythmia [Unknown]
  - Extrasystoles [Unknown]
  - Weight decreased [Unknown]
